FAERS Safety Report 4726544-0 (Version None)
Quarter: 2005Q3

REPORT INFORMATION
  Report Type: 
  Country: None (occurrence: None)
  Receive Date: 20050727
  Receipt Date: 20041013
  Transmission Date: 20060218
  Serious: Yes (Hospitalization)
  Sender: FDA-Public Use
  Company Number: DE-MERCK-0410DEU00761

PATIENT
  Age: 52 Year
  Sex: Male

DRUGS (3)
  1. VIOXX [Suspect]
     Indication: ANKYLOSING SPONDYLITIS
     Route: 048
     Dates: start: 19990101
  2. FLUTICASONE PROPIONATE [Concomitant]
     Route: 065
     Dates: start: 19990101
  3. ALBUTEROL [Concomitant]
     Route: 065
     Dates: start: 19990101

REACTIONS (10)
  - ARRHYTHMIA [None]
  - CANDIDIASIS [None]
  - DEPRESSION [None]
  - DIZZINESS [None]
  - DUODENITIS [None]
  - GASTRITIS EROSIVE [None]
  - NAUSEA [None]
  - REFLUX OESOPHAGITIS [None]
  - SYNCOPE [None]
  - VOMITING [None]
